FAERS Safety Report 4301568-6 (Version None)
Quarter: 2004Q1

REPORT INFORMATION
  Report Type: 
  Country: None (occurrence: None)
  Receive Date: 20040219
  Receipt Date: 20040202
  Transmission Date: 20041129
  Serious: Yes (Hospitalization)
  Sender: FDA-Public Use
  Company Number: 191714

PATIENT
  Age: 57 Year
  Sex: Female
  Weight: 79.3795 kg

DRUGS (4)
  1. AVONEX [Suspect]
     Indication: MULTIPLE SCLEROSIS
     Dosage: 30 MCG QW IM
     Route: 030
     Dates: start: 20020101, end: 20030101
  2. AVONEX [Suspect]
     Indication: MULTIPLE SCLEROSIS
     Dosage: 30 MCG QW IM
     Route: 030
     Dates: start: 20030801
  3. AMANTADINE HCL [Concomitant]
  4. MULTI-VITAMINS [Concomitant]

REACTIONS (7)
  - AMNESIA [None]
  - DEPRESSION [None]
  - HOARSENESS [None]
  - HYPERTROPHY BREAST [None]
  - INFLUENZA LIKE ILLNESS [None]
  - PAIN [None]
  - SWELLING FACE [None]
